FAERS Safety Report 5567400-8 (Version None)
Quarter: 2007Q4

REPORT INFORMATION
  Report Type: 
  Country: None (occurrence: None)
  Receive Date: 20071130
  Receipt Date: 20070910
  Transmission Date: 20080405
  Serious: No
  Sender: FDA-Public Use
  Company Number: US200709002020

PATIENT
  Age: 73 Year
  Sex: Male

DRUGS (6)
  1. BYETTA [Suspect]
     Indication: TYPE 2 DIABETES MELLITUS
     Dosage: 5 UG, 2/D, SUBCUTANEOUS; 10 UG, 2/D, SUBCUTANEOUS
     Route: 058
     Dates: start: 20070501, end: 20070701
  2. BYETTA [Suspect]
     Indication: TYPE 2 DIABETES MELLITUS
     Dosage: 5 UG, 2/D, SUBCUTANEOUS; 10 UG, 2/D, SUBCUTANEOUS
     Route: 058
     Dates: start: 20070701, end: 20070801
  3. EXENATIDE 10MCG PEN, DISPOSABLE DEVICE (EXENATIDE PEN (10 MCG)) PEN,DI [Concomitant]
  4. METFORMIN HCL [Concomitant]
  5. ASPIRIN [Concomitant]
  6. SOTALOL HCL [Concomitant]

REACTIONS (2)
  - NIGHT SWEATS [None]
  - PALPITATIONS [None]
